FAERS Safety Report 8254592-5 (Version None)
Quarter: 2012Q2

REPORT INFORMATION
  Report Type: 
  Country: None (occurrence: None)
  Receive Date: 20120403
  Receipt Date: 20120320
  Transmission Date: 20120825
  Serious: Yes (Hospitalization)
  Sender: FDA-Public Use
  Company Number: AU-CELGENEUS-008-20785-12022460

PATIENT
  Sex: Female

DRUGS (5)
  1. OXYBUTYNIN [Concomitant]
     Route: 065
  2. THALIDOMIDE [Suspect]
     Indication: MULTIPLE MYELOMA
     Dosage: 100 MILLIGRAM
     Route: 048
     Dates: start: 20110225
  3. THALIDOMIDE [Suspect]
     Dosage: 100 MILLIGRAM
     Route: 048
     Dates: start: 20120223
  4. BETA-BLOCKER [Concomitant]
     Route: 065
  5. AMLODIPINE [Concomitant]
     Route: 065

REACTIONS (2)
  - BRADYCARDIA [None]
  - ATRIOVENTRICULAR BLOCK [None]
